FAERS Safety Report 16854944 (Version 1)
Quarter: 2019Q3

REPORT INFORMATION
  Report Type: Spontaneous
  Country: US (occurrence: US)
  Receive Date: 20190926
  Receipt Date: 20190926
  Transmission Date: 20191005
  Serious: Yes (Other)
  Sender: FDA-Public Use
  Company Number: US-GLAXOSMITHKLINE-US2019GSK167779

PATIENT
  Age: 58 Year
  Sex: Female

DRUGS (4)
  1. ALBUTEROL. [Suspect]
     Active Substance: ALBUTEROL
     Indication: DYSPNOEA
  2. ALBUTEROL. [Suspect]
     Active Substance: ALBUTEROL
     Indication: PRODUCTIVE COUGH
     Dosage: UNK UNK, PRN, EVERY 2 HOURS
  3. ALBUTEROL + IPRATROPIUM [Suspect]
     Active Substance: ALBUTEROL\IPRATROPIUM
     Indication: PRODUCTIVE COUGH
     Dosage: UNK, EVERY 8 HOURS
  4. ALBUTEROL + IPRATROPIUM [Suspect]
     Active Substance: ALBUTEROL\IPRATROPIUM
     Indication: DYSPNOEA

REACTIONS (2)
  - Condition aggravated [Recovered/Resolved]
  - Lactic acidosis [Recovered/Resolved]
